FAERS Safety Report 5840427-4 (Version None)
Quarter: 2008Q3

REPORT INFORMATION
  Report Type: 
  Country: None (occurrence: None)
  Receive Date: 20080807
  Receipt Date: 20080730
  Transmission Date: 20090109
  Serious: Yes (Hospitalization)
  Sender: FDA-Public Use
  Company Number: DSA_32210_2008

PATIENT
  Sex: Female
  Weight: 88.905 kg

DRUGS (11)
  1. ATIVAN [Suspect]
     Indication: AGITATION
     Dosage: DF
     Dates: start: 20080503, end: 20080515
  2. ATIVAN [Suspect]
     Indication: ANGER
     Dosage: DF
     Dates: start: 20080503, end: 20080515
  3. ATIVAN [Suspect]
     Indication: FEELING ABNORMAL
     Dosage: DF
     Dates: start: 20080503, end: 20080515
  4. REBIF [Suspect]
     Indication: MULTIPLE SCLEROSIS
     Dosage: 44 UG 3X/WEEK; SUBCUTANEOUS, 44 (DF 3X/WEEK)
     Route: 058
     Dates: start: 20080114, end: 20080517
  5. REBIF [Suspect]
     Indication: MULTIPLE SCLEROSIS
     Dosage: 44 UG 3X/WEEK; SUBCUTANEOUS, 44 (DF 3X/WEEK)
     Route: 058
     Dates: start: 20080501
  6. AMBIEN [Suspect]
     Indication: AGITATION
     Dosage: DF
     Dates: start: 20080503, end: 20080515
  7. AMBIEN [Suspect]
     Indication: ANGER
     Dosage: DF
     Dates: start: 20080503, end: 20080515
  8. AMBIEN [Suspect]
     Indication: FEELING ABNORMAL
     Dosage: DF
     Dates: start: 20080503, end: 20080515
  9. GABAPENTIN [Concomitant]
  10. ZOLOFT [Concomitant]
  11. ULTRAM [Concomitant]

REACTIONS (12)
  - AGITATION [None]
  - ANGER [None]
  - BACK PAIN [None]
  - DIARRHOEA [None]
  - FEELING ABNORMAL [None]
  - HALLUCINATION [None]
  - LOSS OF CONSCIOUSNESS [None]
  - MEMORY IMPAIRMENT [None]
  - MULTIPLE SCLEROSIS RELAPSE [None]
  - PARAESTHESIA [None]
  - TREMOR [None]
  - VOMITING [None]
